FAERS Safety Report 22033425 (Version 3)
Quarter: 2024Q4

REPORT INFORMATION
  Report Type: Spontaneous
  Country: US (occurrence: US)
  Receive Date: 20230224
  Receipt Date: 20241219
  Transmission Date: 20250115
  Serious: No
  Sender: PFIZER
  Company Number: US-PFIZER INC-PV202300033540

PATIENT
  Age: 65 Year
  Sex: Female

DRUGS (5)
  1. IBRANCE [Suspect]
     Active Substance: PALBOCICLIB
     Indication: Breast cancer female
     Dosage: 125 MG TABLET
     Route: 048
  2. IBRANCE [Suspect]
     Active Substance: PALBOCICLIB
     Dosage: 100 MG, CYCLIC (1 X100 MG TABLET ONCE DAILY FOR 21 DAYS OF A 28-DAY CYCLE)
     Route: 048
  3. IBRANCE [Suspect]
     Active Substance: PALBOCICLIB
     Dosage: 75 MG, CYCLIC (1 X 75 MG TABLET ONCE DAILY FOR 21 DAYS OF A 28-DAY CYCLE (3 WEEKS ON, 1 WEEK OFF)
     Route: 048
  4. IBRANCE [Suspect]
     Active Substance: PALBOCICLIB
     Dosage: 100 MG, CYCLIC (1 X 100 MG TABLET ONCE DAILY FOR 21 DAYS OF A 28-DAY CYCLE (3 WEEKS ON, 1 WEEK OFF)
     Route: 048
  5. XANAX [Concomitant]
     Active Substance: ALPRAZOLAM
     Indication: Insomnia
     Dosage: TAKE 1/2 TO 1 TABLET EVERY NIGHT AT BEDTIME AS NEEDED
     Route: 048

REACTIONS (1)
  - Gastrointestinal disorder [Recovered/Resolved]
